FAERS Safety Report 10670797 (Version 4)
Quarter: 2015Q2

REPORT INFORMATION
  Report Type: Spontaneous
  Country: US (occurrence: US)
  Receive Date: 20141223
  Receipt Date: 20150608
  Transmission Date: 20150821
  Serious: No
  Sender: FDA-Public Use
  Company Number: US-PFIZER INC-2014352289

PATIENT
  Age: 66 Year
  Sex: Female
  Weight: 70 kg

DRUGS (10)
  1. NUVIGIL [Concomitant]
     Active Substance: ARMODAFINIL
     Indication: NARCOLEPSY
     Dosage: 250 MG, DAILY
     Dates: start: 1998
  2. SIMVASTATIN. [Concomitant]
     Active Substance: SIMVASTATIN
     Indication: BLOOD CHOLESTEROL
     Dosage: 40 MG, 1X/DAY (AT BEDTIME)
  3. SPIRIVA [Concomitant]
     Active Substance: TIOTROPIUM BROMIDE MONOHYDRATE
     Dosage: UNK, 1X/DAY
     Route: 055
  4. ENALAPRIL [Concomitant]
     Active Substance: ENALAPRIL
     Indication: HYPERTENSION
     Dosage: 20 MG, 1X/DAY
  5. EFFEXOR XR [Suspect]
     Active Substance: VENLAFAXINE HYDROCHLORIDE
     Indication: CATAPLEXY
     Dosage: 150 MG, 1X/DAY
     Route: 048
     Dates: start: 20141124
  6. CARVEDILOL. [Concomitant]
     Active Substance: CARVEDILOL
     Dosage: 12.5 MG, 1X/DAY
  7. PROTONIX [Concomitant]
     Active Substance: PANTOPRAZOLE SODIUM
     Dosage: 40 MG, 3X/DAY
  8. EFFEXOR XR [Suspect]
     Active Substance: VENLAFAXINE HYDROCHLORIDE
     Indication: NARCOLEPSY
  9. AMITIZA [Concomitant]
     Active Substance: LUBIPROSTONE
     Dosage: 8 ?G, 2X/DAY
  10. ADVAIR HFA [Concomitant]
     Active Substance: FLUTICASONE PROPIONATE\SALMETEROL XINAFOATE
     Dosage: [FLUTICASONE PROPIONATE 500]/[SALMETEROL XINAFOATE 50], 2X/DAY
     Route: 055

REACTIONS (2)
  - Therapeutic response unexpected [Not Recovered/Not Resolved]
  - Pre-existing condition improved [Not Recovered/Not Resolved]
